APPROVED DRUG PRODUCT: FOSAPREPITANT DIMEGLUMINE
Active Ingredient: FOSAPREPITANT DIMEGLUMINE
Strength: EQ 150MG BASE/VIAL
Dosage Form/Route: POWDER;INTRAVENOUS
Application: A204015 | Product #002 | TE Code: AP
Applicant: MYLAN LABORATORIES LTD
Approved: Sep 5, 2019 | RLD: No | RS: No | Type: RX